FAERS Safety Report 13188268 (Version 1)
Quarter: 2017Q1

REPORT INFORMATION
  Report Type: Spontaneous
  Country: US (occurrence: US)
  Receive Date: 20170206
  Receipt Date: 20170206
  Transmission Date: 20170428
  Serious: Yes (Life-Threatening, Hospitalization, Disabling)
  Sender: FDA-Public Use
  Company Number: None

PATIENT
  Age: 83 Year
  Sex: Male
  Weight: 65.77 kg

DRUGS (3)
  1. FINASTERIDE. [Suspect]
     Active Substance: FINASTERIDE
     Indication: PROSTATOMEGALY
     Route: 048
     Dates: start: 20151119, end: 20160401
  2. CENTRUM SILVER MULTI VITAMINS [Concomitant]
  3. PROAXIL [Concomitant]

REACTIONS (2)
  - Metastases to lymph nodes [None]
  - Breast cancer [None]

NARRATIVE: CASE EVENT DATE: 201606
